FAERS Safety Report 4422942-3 (Version None)
Quarter: 2004Q3

REPORT INFORMATION
  Report Type: 
  Country: None (occurrence: None)
  Receive Date: 20040806
  Receipt Date: 20040719
  Transmission Date: 20050211
  Serious: Yes (Hospitalization)
  Sender: FDA-Public Use
  Company Number: US-JNJFOC-20030602475

PATIENT
  Age: 78 Year
  Sex: Female
  Weight: 104.3273 kg

DRUGS (15)
  1. REMICADE [Suspect]
     Indication: RHEUMATOID ARTHRITIS
     Dosage: 1 IN 1 DAY
     Dates: start: 20010827
  2. SYNTHROID [Concomitant]
  3. SULFASALAZINE [Concomitant]
  4. COZAAR [Concomitant]
  5. PREDNISONE [Concomitant]
  6. PRILOSEC [Concomitant]
  7. NORVASC [Concomitant]
  8. ZOCOR [Concomitant]
  9. CLONIDINE [Concomitant]
  10. METOCLOPRAMIDE [Concomitant]
  11. TOPROL (METOPROLOL SUCCINATE) [Concomitant]
  12. LASIX [Concomitant]
  13. CALCIUM (CALCIUM) [Concomitant]
  14. IBUPROFEN [Concomitant]
  15. MULTIVITAMIN [Concomitant]

REACTIONS (1)
  - ATRIAL FIBRILLATION [None]
